FAERS Safety Report 8451020-1 (Version None)
Quarter: 2012Q2

REPORT INFORMATION
  Report Type: 
  Country: None (occurrence: None)
  Receive Date: 20120620
  Receipt Date: 20120611
  Transmission Date: 20120825
  Serious: Yes (Hospitalization, Other)
  Sender: FDA-Public Use
  Company Number: BR-ASTRAZENECA-2012SE39549

PATIENT
  Age: 56 Year
  Sex: Female
  Weight: 70 kg

DRUGS (6)
  1. BENICAR [Concomitant]
     Indication: HYPERTENSION
     Route: 048
     Dates: start: 20060101
  2. LEXAPRO [Concomitant]
     Indication: ANXIETY
     Route: 048
     Dates: start: 20110101
  3. INDAPAMIDE [Concomitant]
     Indication: HYPERTENSION
     Route: 048
     Dates: start: 20060101
  4. LEVOTHYROXINE SODIUM [Concomitant]
     Route: 048
  5. CRESTOR [Suspect]
     Indication: BLOOD CHOLESTEROL INCREASED
     Route: 048
     Dates: start: 20100101, end: 20100301
  6. SOMALGIN [Suspect]
     Route: 048
     Dates: start: 20060101, end: 20120201

REACTIONS (2)
  - CEREBROVASCULAR ACCIDENT [None]
  - MELANOCYTIC NAEVUS [None]
